FAERS Safety Report 18025638 (Version 1)
Quarter: 2020Q3

REPORT INFORMATION
  Report Type: Other
  Country: ES (occurrence: ES)
  Receive Date: 20200715
  Receipt Date: 20200715
  Transmission Date: 20201103
  Serious: Yes (Other)
  Sender: FDA-Public Use
  Company Number: ES-ARBOR PHARMACEUTICALS, LLC-ES-2020ARB000547

PATIENT
  Age: 87 Year
  Sex: Male

DRUGS (1)
  1. TRIPTODUR [Suspect]
     Active Substance: TRIPTORELIN
     Indication: PROSTATE CANCER
     Dosage: 22.5 MG, 1 IN 6 M
     Route: 030
     Dates: start: 20170516

REACTIONS (3)
  - Product reconstitution quality issue [Unknown]
  - Condition aggravated [Unknown]
  - Prostate cancer [Unknown]

NARRATIVE: CASE EVENT DATE: 20200609
